FAERS Safety Report 7590967-5 (Version None)
Quarter: 2011Q3

REPORT INFORMATION
  Report Type: 
  Country: None (occurrence: None)
  Receive Date: 20110705
  Receipt Date: 20110629
  Transmission Date: 20111222
  Serious: Yes (Death)
  Sender: FDA-Public Use
  Company Number: PHHO2011ES11229

PATIENT
  Sex: Male
  Weight: 79 kg

DRUGS (3)
  1. IDARUBICIN HCL [Suspect]
     Indication: ACUTE MYELOID LEUKAEMIA
     Dosage: 15 MG, UNK
     Dates: start: 20110621
  2. CYTARABINE [Suspect]
     Indication: ACUTE MYELOID LEUKAEMIA
     Dosage: UNK
     Dates: start: 20110621, end: 20110627
  3. LBH589 [Suspect]
     Indication: ACUTE MYELOID LEUKAEMIA
     Dosage: NO TREATMENT

REACTIONS (2)
  - TUMOUR LYSIS SYNDROME [None]
  - MULTI-ORGAN FAILURE [None]
